FAERS Safety Report 25346808 (Version 1)
Quarter: 2025Q2

REPORT INFORMATION
  Report Type: Spontaneous
  Country: SG (occurrence: SG)
  Receive Date: 20250522
  Receipt Date: 20250522
  Transmission Date: 20250716
  Serious: Yes (Death, Hospitalization)
  Sender: RECORDATI
  Company Number: SG-RECORDATI RARE DISEASE INC.-2025003257

PATIENT
  Sex: Female
  Weight: 43.5 kg

DRUGS (1)
  1. SIGNIFOR LAR [Suspect]
     Active Substance: PASIREOTIDE PAMOATE
     Indication: Pituitary-dependent Cushing^s syndrome
     Route: 030
     Dates: start: 202001, end: 20250102

REACTIONS (1)
  - Pneumonia [Fatal]

NARRATIVE: CASE EVENT DATE: 20240101
